FAERS Safety Report 17950785 (Version 2)
Quarter: 2021Q2

REPORT INFORMATION
  Report Type: Spontaneous
  Country: CA (occurrence: CA)
  Receive Date: 20200626
  Receipt Date: 20210628
  Transmission Date: 20210717
  Serious: Yes (Other)
  Sender: FDA-Public Use
  Company Number: CA-TEVA-2020-CA-1793827

PATIENT
  Age: 38 Year
  Sex: Female

DRUGS (6)
  1. ATORVASTATIN [Suspect]
     Active Substance: ATORVASTATIN
     Indication: HYPERLIPIDAEMIA
     Route: 065
  2. FENOFIBRATE. [Suspect]
     Active Substance: FENOFIBRATE
     Indication: HYPERLIPIDAEMIA
     Route: 065
  3. NIACIN. [Suspect]
     Active Substance: NIACIN
     Indication: PRODUCT USED FOR UNKNOWN INDICATION
     Dosage: 500 MILLIGRAM DAILY;
     Route: 065
  4. METFORMIN [Suspect]
     Active Substance: METFORMIN HYDROCHLORIDE
     Indication: POLYCYSTIC OVARIES
     Route: 065
  5. ROSUVASTATIN. [Suspect]
     Active Substance: ROSUVASTATIN
     Indication: PRODUCT USED FOR UNKNOWN INDICATION
     Route: 048
  6. DOCOSAHEXAENOICACID/EICOSAPENTAENOIC ACID [Suspect]
     Active Substance: DOCONEXENT\ICOSAPENT
     Indication: HYPERLIPIDAEMIA
     Route: 065

REACTIONS (2)
  - Exposure during pregnancy [Unknown]
  - Abortion spontaneous [Unknown]
